FAERS Safety Report 14804173 (Version 1)
Quarter: 2018Q2

REPORT INFORMATION
  Report Type: Report from Study
  Country: None (occurrence: US)
  Receive Date: 20180425
  Receipt Date: 20180425
  Transmission Date: 20180711
  Serious: Yes (Other)
  Sender: FDA-Public Use
  Company Number: US-ABBVIE-17K-163-1996398-00

PATIENT
  Sex: Male

DRUGS (1)
  1. HUMIRA [Suspect]
     Active Substance: ADALIMUMAB
     Indication: RHEUMATOID ARTHRITIS
     Route: 058

REACTIONS (7)
  - Constipation [Unknown]
  - Aneurysm [Unknown]
  - Weight decreased [Unknown]
  - Malaise [Unknown]
  - Abdominal pain upper [Unknown]
  - Abdominal pain [Unknown]
  - Gastrointestinal disorder [Unknown]
